FAERS Safety Report 15451254 (Version 1)
Quarter: 2018Q3

REPORT INFORMATION
  Report Type: Spontaneous
  Country: US (occurrence: US)
  Receive Date: 20180927
  Receipt Date: 20180927
  Transmission Date: 20181010
  Serious: No
  Sender: FDA-Public Use
  Company Number: None

PATIENT
  Age: 41 Year
  Sex: Female

DRUGS (11)
  1. CRANBERRY. [Concomitant]
     Active Substance: CRANBERRY
  2. PREDNISONE. [Concomitant]
     Active Substance: PREDNISONE
  3. PANTOPRAZOLE [Concomitant]
     Active Substance: PANTOPRAZOLE
  4. MYCOPHENOLIC [Suspect]
     Active Substance: MYCOPHENOLIC ACID
     Indication: RENAL TRANSPLANT
     Route: 048
     Dates: start: 20180221
  5. LANTUS [Concomitant]
     Active Substance: INSULIN GLARGINE
  6. PRENATAL [Concomitant]
     Active Substance: VITAMINS
  7. FERREX 150 [Concomitant]
  8. METORPOLOL [Concomitant]
     Active Substance: METOPROLOL
  9. SENSIPAR [Concomitant]
     Active Substance: CINACALCET HYDROCHLORIDE
  10. ENVARSUS XR [Concomitant]
     Active Substance: TACROLIMUS
  11. HYDROCHOROT [Concomitant]

REACTIONS (2)
  - Dehydration [None]
  - Blood creatine increased [None]

NARRATIVE: CASE EVENT DATE: 20180815
